FAERS Safety Report 22180750 (Version 1)
Quarter: 2023Q2

REPORT INFORMATION
  Report Type: Spontaneous
  Country: US (occurrence: None)
  Receive Date: 20230406
  Receipt Date: 20230406
  Transmission Date: 20230722
  Serious: Yes (Hospitalization)
  Sender: FDA-Public Use
  Company Number: US-ROCHE-3322962

PATIENT
  Age: 18 Year
  Sex: Male

DRUGS (1)
  1. PULMOZYME [Suspect]
     Active Substance: DORNASE ALFA
     Indication: Product used for unknown indication
     Route: 065
     Dates: start: 20230115

REACTIONS (3)
  - Large intestine perforation [Unknown]
  - Thyroid cyst [Unknown]
  - Intestinal calcification [Unknown]
